FAERS Safety Report 5608138-8 (Version None)
Quarter: 2008Q1

REPORT INFORMATION
  Report Type: 
  Country: None (occurrence: None)
  Receive Date: 20080125
  Receipt Date: 20080108
  Transmission Date: 20080703
  Serious: No
  Sender: FDA-Public Use
  Company Number: 2007JP005598

PATIENT
  Age: 58 Year
  Sex: Female
  Weight: 49.2 kg

DRUGS (4)
  1. PROGRAF [Suspect]
     Indication: LIVER TRANSPLANT
     Dosage: ORAL
     Route: 048
     Dates: start: 20040621, end: 20040722
  2. NEORAL [Suspect]
     Indication: LIVER TRANSPLANT
     Dosage: ORAL, ORAL
     Route: 048
     Dates: start: 20040722, end: 20050927
  3. NEORAL [Suspect]
     Indication: LIVER TRANSPLANT
     Dosage: ORAL, ORAL
     Route: 048
     Dates: start: 20050928
  4. PREDNISONE (PREDNISONE) FORMULATION UNKNOWN [Concomitant]

REACTIONS (3)
  - CEREBELLAR ATAXIA [None]
  - HEARING IMPAIRED [None]
  - LIVER TRANSPLANT REJECTION [None]
